FAERS Safety Report 10336952 (Version 1)
Quarter: 2014Q3

REPORT INFORMATION
  Report Type: Spontaneous
  Country: SK (occurrence: SK)
  Receive Date: 20140723
  Receipt Date: 20140723
  Transmission Date: 20150326
  Serious: Yes (Hospitalization)
  Sender: FDA-Public Use
  Company Number: SK-B.I. PHARMACEUTICALS,INC./RIDGEFIELD-2014-BI-33417SK

PATIENT
  Age: 90 Year
  Sex: Female

DRUGS (7)
  1. HELICID [Concomitant]
     Dosage: 40 MG
     Route: 048
  2. PRADAXA [Suspect]
     Active Substance: DABIGATRAN ETEXILATE MESYLATE
     Indication: ATRIAL FIBRILLATION
     Dosage: 220 MG
     Route: 048
     Dates: end: 20140302
  3. ISOPTIN SR [Concomitant]
     Active Substance: VERAPAMIL HYDROCHLORIDE
     Dosage: 8 MG
     Route: 048
  4. TENAXUM [Concomitant]
     Active Substance: RILMENIDINE
     Dosage: 2 MG
     Route: 048
  5. ESCITALOPRAM [Concomitant]
     Active Substance: ESCITALOPRAM OXALATE
     Dosage: 10 MG
     Route: 048
  6. DIAPREL [Concomitant]
     Active Substance: GLICLAZIDE
     Dosage: 10 MG
     Route: 048
  7. LUSOPRESS [Concomitant]
     Active Substance: NITRENDIPINE
     Dosage: 40 MG
     Route: 048

REACTIONS (4)
  - Haematochezia [Recovered/Resolved]
  - Hypocoagulable state [Recovered/Resolved]
  - Haematemesis [Recovered/Resolved]
  - Anaemia [Unknown]

NARRATIVE: CASE EVENT DATE: 20140302
